FAERS Safety Report 8372042-5 (Version None)
Quarter: 2012Q2

REPORT INFORMATION
  Report Type: 
  Country: None (occurrence: None)
  Receive Date: 20120520
  Receipt Date: 20120515
  Transmission Date: 20120825
  Serious: Yes (Other)
  Sender: FDA-Public Use
  Company Number: PHHY2012GB041302

PATIENT
  Age: 24 Year
  Sex: Female

DRUGS (7)
  1. VENTOLIN [Concomitant]
     Indication: ASTHMA
     Dosage: 1 DF, BID
  2. AMOXICILLIN [Concomitant]
     Indication: TONSILLITIS
     Dosage: 500 MG, UNK
     Route: 048
     Dates: start: 20120425, end: 20120428
  3. PENICILLIN G [Suspect]
     Indication: TONSILLITIS
     Dosage: 1.2 G, UNK
     Route: 042
     Dates: start: 20120428, end: 20120428
  4. CONTRACEPTIVES [Concomitant]
  5. FLUTICASONE PROPIONATE/SALMETEROL [Concomitant]
     Indication: ASTHMA
     Dosage: 1 DF, BID
  6. WARFARIN SODIUM [Concomitant]
     Indication: HEART VALVE REPLACEMENT
  7. METRONIDAZOLE [Suspect]
     Indication: TONSILLITIS
     Dosage: 500 MG, UNK
     Route: 042
     Dates: start: 20120428, end: 20120428

REACTIONS (3)
  - OXYGEN SATURATION DECREASED [None]
  - HYPOTENSION [None]
  - BACK PAIN [None]
